FAERS Safety Report 15660240 (Version 2)
Quarter: 2019Q1

REPORT INFORMATION
  Report Type: Spontaneous
  Country: US (occurrence: US)
  Receive Date: 20181127
  Receipt Date: 20190128
  Transmission Date: 20190417
  Serious: Yes (Hospitalization, Other)
  Sender: FDA-Public Use
  Company Number: US-BAYER-2018-216075

PATIENT
  Age: 54 Year
  Sex: Female
  Weight: 71.2 kg

DRUGS (5)
  1. ADEMPAS [Suspect]
     Active Substance: RIOCIGUAT
     Dosage: UNK
  2. TADALAFIL. [Concomitant]
     Active Substance: TADALAFIL
     Dosage: UNK
  3. TYVASO [Suspect]
     Active Substance: TREPROSTINIL
     Dosage: UNK
  4. ADEMPAS [Suspect]
     Active Substance: RIOCIGUAT
     Dosage: 2 MG
  5. REMODULIN [Suspect]
     Active Substance: TREPROSTINIL
     Indication: PULMONARY ARTERIAL HYPERTENSION
     Dosage: 1 MG/ML
     Route: 042
     Dates: start: 20181210

REACTIONS (6)
  - Dysphonia [None]
  - Dyspepsia [None]
  - Hypotension [Not Recovered/Not Resolved]
  - Pain in extremity [None]
  - Rectal haemorrhage [None]
  - Fatigue [None]

NARRATIVE: CASE EVENT DATE: 20181225
